FAERS Safety Report 15747727 (Version 1)
Quarter: 2018Q4

REPORT INFORMATION
  Report Type: Spontaneous
  Country: CZ (occurrence: CZ)
  Receive Date: 20181221
  Receipt Date: 20181221
  Transmission Date: 20190205
  Serious: Yes (Life-Threatening, Hospitalization, Other)
  Sender: FDA-Public Use
  Company Number: PHHY2018CZ189568

PATIENT
  Age: 64 Year
  Sex: Female

DRUGS (9)
  1. PACLITAXEL. [Suspect]
     Active Substance: PACLITAXEL
     Indication: BREAST CANCER
     Dosage: 80 MG/M2, CYCLIC (DAY 1 OF 12 WEEKLY CYCLES )
     Route: 042
     Dates: start: 20150707, end: 20151013
  2. ABT 888 [Suspect]
     Active Substance: VELIPARIB
     Indication: BREAST CANCER
     Dosage: 50 MG/M2, QD (50 MG/M2 DAILY; AUC 6 DAY 1 OF)
     Route: 048
  3. CYCLOPHOSPHAMIDE. [Suspect]
     Active Substance: CYCLOPHOSPHAMIDE
     Indication: BREAST CANCER
     Dosage: 600 MG/M2, CYCLIC (DAY 1 OF FOUR 14-DAY CYCLES)
     Route: 015
     Dates: start: 20151029, end: 20151217
  4. ZOLPINOX [Concomitant]
     Indication: INSOMNIA
     Dosage: 10 MG, QD
     Route: 048
     Dates: start: 201507
  5. DOXORUBICIN [Suspect]
     Active Substance: DOXORUBICIN
     Indication: BREAST CANCER
     Dosage: 60 MG/M2, CYCLIC (DAY 1 OF FOUR 14-DAY CYCLES)
     Route: 042
     Dates: start: 20151029, end: 20151215
  6. TRITACE [Concomitant]
     Active Substance: RAMIPRIL
     Indication: HYPERTENSION
     Dosage: 5 MG, QD
     Route: 048
  7. CARBOPLATIN. [Suspect]
     Active Substance: CARBOPLATIN
     Indication: BREAST CANCER
     Dosage: UNK UNK, CYCLIC (AUC 6 DAY 1 OF FOUR 21DAY CYCLES)
     Route: 042
     Dates: start: 20150709, end: 20151007
  8. HELICID [Concomitant]
     Active Substance: OMEPRAZOLE
     Indication: ABDOMINAL PAIN UPPER
     Dosage: 20 MG, QD
     Route: 048
  9. TENAXUM [Concomitant]
     Active Substance: RILMENIDINE
     Indication: HYPERTENSION
     Dosage: 1 MG, QD
     Route: 048

REACTIONS (1)
  - Acute myeloid leukaemia [Not Recovered/Not Resolved]

NARRATIVE: CASE EVENT DATE: 20181101
